FAERS Safety Report 19419890 (Version 11)
Quarter: 2022Q3

REPORT INFORMATION
  Report Type: Report from Study
  Country: GB (occurrence: GB)
  Receive Date: 20210615
  Receipt Date: 20220805
  Transmission Date: 20221027
  Serious: Yes (Life-Threatening, Other)
  Sender: FDA-Public Use
  Company Number: GB-ROCHE-2808887

PATIENT
  Age: 46 Year
  Sex: Female

DRUGS (39)
  1. DOCETAXEL [Suspect]
     Active Substance: DOCETAXEL
     Indication: Breast cancer metastatic
     Dosage: 120 MILLIGRAM, Q3W (120 MG, EVERY 3 WEEKS)
     Route: 042
     Dates: start: 20160314, end: 20160810
  2. LETROZOLE [Suspect]
     Active Substance: LETROZOLE
     Indication: Breast cancer metastatic
     Dosage: 2.5 MICROGRAM, QD (2.5 UG, 1X/DAY)/09-JUL-2019
     Route: 048
  3. LETROZOLE [Suspect]
     Active Substance: LETROZOLE
     Dosage: 3 MILLIGRAM, QD/09-JUL-2019
     Route: 048
  4. LETROZOLE [Suspect]
     Active Substance: LETROZOLE
     Dosage: 2.5 MILLIGRAM, QD/09-JUL-2019
     Route: 048
  5. TAMOXIFEN [Suspect]
     Active Substance: TAMOXIFEN
     Indication: Breast cancer metastatic
     Dosage: 20 MILLIGRAM, QD (20 MG, 1X/DAY)/10-OCT-2016
     Route: 048
     Dates: end: 20190708
  6. TRASTUZUMAB [Suspect]
     Active Substance: TRASTUZUMAB
     Indication: Breast cancer metastatic
     Dosage: 600 MILLIGRAM, Q3W
     Route: 058
     Dates: start: 20160425
  7. TRASTUZUMAB [Suspect]
     Active Substance: TRASTUZUMAB
     Dosage: 600 MILLIGRAM, Q3W  (600 MG, EVERY 3 WEEKS)
     Route: 041
     Dates: start: 20160425
  8. TRASTUZUMAB [Suspect]
     Active Substance: TRASTUZUMAB
     Dosage: UNK
     Route: 058
  9. PERTUZUMAB [Suspect]
     Active Substance: PERTUZUMAB
     Indication: Breast cancer metastatic
     Dosage: 840 MG, EVERY 3 WEEKS, INITIAL LOADING DOSE
     Route: 042
     Dates: start: 20160425, end: 20160425
  10. PERTUZUMAB [Suspect]
     Active Substance: PERTUZUMAB
     Dosage: 420 MG, EVERY 3 WEEKS, MAINTENANCE DOSE
     Route: 042
     Dates: start: 20160516
  11. AMITRIPTYLINE [Concomitant]
     Active Substance: AMITRIPTYLINE
     Indication: Metastases to central nervous system
     Dosage: 10 MILLIGRAM, QD (10 MG, 1X/DAY), START 07-APR-2021
     Route: 048
  12. BUTYLSCOPOLAMINE BROMIDE [Concomitant]
     Active Substance: BUTYLSCOPOLAMINE BROMIDE
     Indication: Abdominal pain
     Dosage: 20 MILLIGRAM, QID (20 MG, 4X/DAY)
     Route: 048
     Dates: start: 20160625
  13. CODEINE [Concomitant]
     Active Substance: CODEINE
     Indication: Phantom limb syndrome
     Dosage: 30 MILLIGRAM, BID (30 MG, 2X/DAY)
     Route: 048
     Dates: start: 20160919
  14. CODEINE [Concomitant]
     Active Substance: CODEINE
     Indication: Musculoskeletal chest pain
  15. DEXAMETHASONE [Concomitant]
     Active Substance: DEXAMETHASONE
     Indication: Metastases to central nervous system
     Dosage: 2 MILLIGRAM, QD, CUMULATIVE DOSE 812.0833 MG/11-OCT-2019
     Route: 048
     Dates: end: 20191125
  16. DEXAMETHASONE [Concomitant]
     Active Substance: DEXAMETHASONE
     Indication: Headache
     Dosage: 4 MILLIGRAM, BID/SEP-2019
     Route: 048
     Dates: end: 20191010
  17. DEXAMETHASONE [Concomitant]
     Active Substance: DEXAMETHASONE
     Dosage: 4 MILLIGRAM, QD/11-JUN-2020
     Route: 048
  18. DEXAMETHASONE [Concomitant]
     Active Substance: DEXAMETHASONE
     Dosage: 1.5 MILLIGRAM, QD/26-NOV-2019
     Route: 048
     Dates: end: 20191203
  19. DEXAMETHASONE [Concomitant]
     Active Substance: DEXAMETHASONE
     Dosage: 0.5 MILLIGRAM, QOD/24-DEC-2019 (0.5 MG, ALTERNATE DAY)
     Route: 048
     Dates: end: 202002
  20. DEXAMETHASONE [Concomitant]
     Active Substance: DEXAMETHASONE
     Dosage: 4 MILLIGRAM, QD/16-FEB-2021
     Route: 048
  21. DEXAMETHASONE [Concomitant]
     Active Substance: DEXAMETHASONE
     Dosage: 1 MILLIGRAM, QOD/04-DEC-2019 (1 MG, ALTERNATE DAY)
     Route: 048
     Dates: end: 20191223
  22. DEXAMETHASONE [Concomitant]
     Active Substance: DEXAMETHASONE
     Dosage: 4 MILLIGRAM, BID
     Route: 048
     Dates: start: 201909, end: 20191010
  23. DEXAMETHASONE [Concomitant]
     Active Substance: DEXAMETHASONE
     Dosage: 2 MILLIGRAM, QD (25-NOV-2019)
     Route: 048
  24. DEXAMETHASONE [Concomitant]
     Active Substance: DEXAMETHASONE
     Dosage: 2.5 MILLIGRAM, QD (3-DEC-2019)
     Route: 048
  25. DEXAMETHASONE [Concomitant]
     Active Substance: DEXAMETHASONE
     Dosage: 1 MILLIGRAM, QD (1 MG, 1X/DAY) (23-DEC-2019)
     Route: 048
  26. DOCUSATE [Concomitant]
     Active Substance: DOCUSATE
     Indication: Constipation
     Dosage: 100 MILLIGRAM/26-FEB-2021
     Route: 048
  27. DOCUSATE [Concomitant]
     Active Substance: DOCUSATE
     Dosage: 100 MILLIGRAM/28-FEB-2021
     Route: 048
  28. IBUPROFEN [Concomitant]
     Active Substance: IBUPROFEN
     Indication: Musculoskeletal pain
     Dosage: 200 MILLIGRAM, PRN (200 MG, AS NEEDED)
     Route: 048
     Dates: start: 20160612
  29. POLYETHYLENE GLYCOL 3350\POTASSIUM CHLORIDE\SODIUM BICARBONATE\SODIUM [Concomitant]
     Active Substance: POLYETHYLENE GLYCOL 3350\POTASSIUM CHLORIDE\SODIUM BICARBONATE\SODIUM CHLORIDE
     Dosage: UNK UNK, QD (UNK, 1X/DAY)
     Route: 048
     Dates: start: 20160627
  30. OMEPRAZOLE [Concomitant]
     Active Substance: OMEPRAZOLE
     Indication: Metastases to central nervous system
     Dosage: 20 MILLIGRAM, BID/SEP-2019 (20 MG, 2X/DAY)
     Route: 048
  31. MORPHINE SULFATE [Concomitant]
     Active Substance: MORPHINE SULFATE
     Indication: Metastases to central nervous system
     Dosage: 10 MILLIGRAM, PRN/START 11-MAR-2021
     Route: 048
  32. MORPHINE SULFATE [Concomitant]
     Active Substance: MORPHINE SULFATE
     Dosage: UNK UNK, PRN/START 11-MAR-2021
     Route: 048
  33. ACETAMINOPHEN [Concomitant]
     Active Substance: ACETAMINOPHEN
     Indication: Musculoskeletal pain
     Dosage: 1 GRAM, PRN/12-JUN-2016
     Route: 048
  34. MINERAL OIL\PARAFFIN [Concomitant]
     Active Substance: MINERAL OIL\PARAFFIN
     Dosage: UNK
     Route: 065
  35. BENZYDAMINE HYDROCHLORIDE [Concomitant]
     Active Substance: BENZYDAMINE HYDROCHLORIDE
     Indication: Mouth ulceration
     Dosage: 10 MILLILITER, QID (10 ML, 4X/DAY)
     Route: 061
     Dates: start: 20160611
  36. KADCYLA [Concomitant]
     Active Substance: ADO-TRASTUZUMAB EMTANSINE
     Indication: Pulmonary mass
     Dosage: 220 MILLIGRAM, MONTHLY/14-APR-2020
     Route: 042
  37. PERMETHRIN [Concomitant]
     Active Substance: PERMETHRIN
     Indication: Skin infection
     Dosage: 5 PERCENT (PHARMACEUTICAL DOSE FORM: 17) (11-MAR-2021)
     Route: 061
     Dates: end: 20210311
  38. PERMETHRIN [Concomitant]
     Active Substance: PERMETHRIN
     Dosage: UNK
     Route: 065
  39. POLYETHYLENE GLYCOL 3350 [Concomitant]
     Active Substance: POLYETHYLENE GLYCOL 3350
     Dosage: UNK
     Route: 065

REACTIONS (12)
  - Cellulitis [Recovered/Resolved]
  - Urinary tract infection [Recovered/Resolved]
  - Skin infection [Recovered/Resolved]
  - Vision blurred [Recovered/Resolved]
  - Headache [Recovered/Resolved]
  - Acarodermatitis [Recovered/Resolved]
  - Fatigue [Recovered/Resolved]
  - Metastases to central nervous system [Recovered/Resolved]
  - Lymphoedema [Recovered/Resolved]
  - Pulmonary mass [Recovered/Resolved]
  - Constipation [Recovered/Resolved]
  - Incorrect route of product administration [Unknown]

NARRATIVE: CASE EVENT DATE: 20161001
